FAERS Safety Report 11793994 (Version 1)
Quarter: 2015Q4

REPORT INFORMATION
  Report Type: Spontaneous
  Country: US (occurrence: US)
  Receive Date: 20151202
  Receipt Date: 20151202
  Transmission Date: 20160305
  Serious: No
  Sender: FDA-Public Use
  Company Number: US-PFIZER INC-2015403403

PATIENT
  Age: 50 Year
  Sex: Male
  Weight: 98 kg

DRUGS (6)
  1. DILANTIN [Suspect]
     Active Substance: PHENYTOIN
     Dosage: 30 MG, 2X/DAY, ON IN MORNING, ONE AT NIGHT
  2. IBUPROFEN. [Suspect]
     Active Substance: IBUPROFEN
     Indication: PAIN
     Dosage: MORE THAN 500 MG
  3. NITROUS OXIDE. [Concomitant]
     Active Substance: NITROUS OXIDE
  4. PRIMIDONE. [Concomitant]
     Active Substance: PRIMIDONE
     Dosage: 500 MG, 2X/DAY MORNING AND NIGHT
     Dates: start: 1978
  5. DILANTIN [Suspect]
     Active Substance: PHENYTOIN
     Indication: EPILEPSY
     Dosage: 600 MG, 1X/DAY
     Dates: start: 1978
  6. PHENYTOIN. [Concomitant]
     Active Substance: PHENYTOIN
     Dosage: 300 MG, 2X/DAY MORNING AND AT NIGHT

REACTIONS (3)
  - Aphthous ulcer [Recovered/Resolved]
  - Stomatitis [Recovered/Resolved]
  - Mouth haemorrhage [Recovered/Resolved]

NARRATIVE: CASE EVENT DATE: 2012
